FAERS Safety Report 11038384 (Version 1)
Quarter: 2015Q2

REPORT INFORMATION
  Report Type: Spontaneous
  Country: US (occurrence: US)
  Receive Date: 20150416
  Receipt Date: 20150416
  Transmission Date: 20150821
  Serious: No
  Sender: FDA-Public Use
  Company Number: US-MALLINCKRODT-T201402038

PATIENT
  Sex: Male

DRUGS (1)
  1. METHYLIN [Suspect]
     Active Substance: METHYLPHENIDATE HYDROCHLORIDE
     Indication: PRODUCT USED FOR UNKNOWN INDICATION
     Dosage: 10 MG, HALVED
     Route: 065

REACTIONS (5)
  - Wrong technique in drug usage process [Unknown]
  - Product quality issue [Unknown]
  - Feeling abnormal [Unknown]
  - Drug ineffective [Unknown]
  - Insomnia [Unknown]
